FAERS Safety Report 24445459 (Version 1)
Quarter: 2024Q4

REPORT INFORMATION
  Report Type: Spontaneous
  Country: US (occurrence: None)
  Receive Date: 20241015
  Receipt Date: 20241015
  Transmission Date: 20250115
  Serious: Yes (Other)
  Sender: Public
  Company Number: None

PATIENT
  Age: 63 Year
  Sex: Male
  Weight: 92.25 kg

DRUGS (3)
  1. ESCITALOPRAM [Suspect]
     Active Substance: ESCITALOPRAM OXALATE
     Indication: Depression
     Dates: start: 20240801, end: 20241008
  2. LEXAPRO [Concomitant]
     Active Substance: ESCITALOPRAM OXALATE
  3. LANSOPRAZOLE [Concomitant]
     Active Substance: LANSOPRAZOLE

REACTIONS (8)
  - Amnesia [None]
  - Suicidal ideation [None]
  - Morbid thoughts [None]
  - Product use issue [None]
  - Affect lability [None]
  - Crying [None]
  - Pancreatic neoplasm [None]
  - Hepatic encephalopathy [None]

NARRATIVE: CASE EVENT DATE: 20241013
